FAERS Safety Report 6098986-5 (Version None)
Quarter: 2009Q1

REPORT INFORMATION
  Report Type: 
  Country: None (occurrence: None)
  Receive Date: 20090302
  Receipt Date: 20090216
  Transmission Date: 20090719
  Serious: Yes (Other)
  Sender: FDA-Public Use
  Company Number: SK-ROCHE-590813

PATIENT
  Sex: Female
  Weight: 68 kg

DRUGS (3)
  1. PEGASYS [Suspect]
     Route: 065
     Dates: start: 20070901, end: 20080725
  2. COPEGUS [Suspect]
     Route: 065
     Dates: start: 20070901, end: 20080725
  3. METHADON [Suspect]
     Indication: DRUG USE FOR UNKNOWN INDICATION
     Route: 065

REACTIONS (1)
  - ABORTION SPONTANEOUS [None]
